FAERS Safety Report 4494528-6 (Version None)
Quarter: 2004Q4

REPORT INFORMATION
  Report Type: 
  Country: None (occurrence: None)
  Receive Date: 20041105
  Receipt Date: 20041026
  Transmission Date: 20050328
  Serious: Yes (Hospitalization, Disabling)
  Sender: FDA-Public Use
  Company Number: NO-MERCK-0410NOR00026

PATIENT
  Age: 66 Year
  Sex: Male

DRUGS (1)
  1. ZOCOR [Suspect]
     Indication: PROPHYLAXIS
     Route: 048
     Dates: end: 20040501

REACTIONS (6)
  - ALANINE AMINOTRANSFERASE INCREASED [None]
  - ASPARTATE AMINOTRANSFERASE INCREASED [None]
  - BLOOD CREATINE PHOSPHOKINASE INCREASED [None]
  - HYPOREFLEXIA [None]
  - MUSCLE ATROPHY [None]
  - MYALGIA [None]
